FAERS Safety Report 13791303 (Version 1)
Quarter: 2017Q3

REPORT INFORMATION
  Report Type: Spontaneous
  Country: US (occurrence: US)
  Receive Date: 20170725
  Receipt Date: 20170725
  Transmission Date: 20171127
  Serious: No
  Sender: FDA-Public Use
  Company Number: US-BAYER-2017-141667

PATIENT
  Age: 68 Year
  Sex: Male
  Weight: 90 kg

DRUGS (11)
  1. VITAMIN C [ASCORBIC ACID] [Concomitant]
     Dosage: UNK
  2. GLUCOSAMIN [Concomitant]
     Dosage: UNK
  3. FISH OIL [Concomitant]
     Active Substance: FISH OIL
     Dosage: UNK
  4. COMBIVENT [Concomitant]
     Active Substance: ALBUTEROL SULFATE\IPRATROPIUM BROMIDE
  5. MIRALAX [Suspect]
     Active Substance: POLYETHYLENE GLYCOL 3350
     Indication: COLONOSCOPY
     Dosage: HALF THE BOTTLE IN SPRITE DOSE
     Route: 048
     Dates: start: 1997, end: 1997
  6. CRANBERRY. [Concomitant]
     Active Substance: CRANBERRY
     Dosage: UNK
  7. VITAMIN E [TOCOPHEROL] [Concomitant]
     Dosage: UNK
  8. VITAMIN D3 [Concomitant]
     Active Substance: CHOLECALCIFEROL
     Dosage: UNK
  9. CALCIUM D3 [CALCIUM,COLECALCIFEROL] [Concomitant]
     Dosage: UNK
  10. ASPIRIN (E.C.) [ACETYLSALICYLIC ACID] [Concomitant]
     Active Substance: ASPIRIN
  11. ADVAIR HFA [Concomitant]
     Active Substance: FLUTICASONE PROPIONATE\SALMETEROL XINAFOATE
     Dosage: UNK

REACTIONS (3)
  - Off label use [Unknown]
  - Incorrect dosage administered [Unknown]
  - Product use in unapproved indication [Unknown]

NARRATIVE: CASE EVENT DATE: 1997
